FAERS Safety Report 9644454 (Version 2)
Quarter: 2013Q4

REPORT INFORMATION
  Report Type: Spontaneous
  Country: FR (occurrence: FR)
  Receive Date: 20131025
  Receipt Date: 20131106
  Transmission Date: 20140711
  Serious: Yes (Death)
  Sender: FDA-Public Use
  Company Number: FR-009507513-1310FRA009721

PATIENT
  Age: 66 Year
  Sex: Male

DRUGS (4)
  1. ORGARAN [Suspect]
     Indication: HEPARIN-INDUCED THROMBOCYTOPENIA
     Dosage: 200 IU, QH
     Route: 042
     Dates: start: 20130820, end: 20130824
  2. ORGARAN [Suspect]
     Indication: HEPARIN-INDUCED THROMBOCYTOPENIA
     Dosage: 2000 IU, BID
     Route: 058
     Dates: start: 20130826, end: 20130828
  3. HEPARIN SODIUM [Concomitant]
     Indication: VENTRICULAR DYSFUNCTION
     Dosage: UNK
     Route: 042
     Dates: start: 20130813, end: 20130819
  4. FUROSEMIDE [Concomitant]
     Dosage: UNK
     Route: 042
     Dates: start: 20130824, end: 20130828

REACTIONS (1)
  - Retroperitoneal haematoma [Fatal]
